FAERS Safety Report 9483854 (Version 2)
Quarter: 2013Q3

REPORT INFORMATION
  Report Type: Report from Study
  Country: JP (occurrence: JP)
  Receive Date: 20130828
  Receipt Date: 20130829
  Transmission Date: 20140515
  Serious: Yes (Death, Hospitalization)
  Sender: FDA-Public Use
  Company Number: PHHO2013JP011149

PATIENT
  Age: 60 Year
  Sex: Male

DRUGS (4)
  1. AMN107 [Suspect]
     Indication: GASTROINTESTINAL STROMAL TUMOUR
     Dosage: 800 MG, UNK
     Route: 048
     Dates: start: 20090330
  2. AMN107 [Suspect]
     Dosage: 400 MG, UNK
     Route: 048
     Dates: start: 20090408
  3. ANTEBATE [Concomitant]
     Indication: RASH
     Dosage: UNK
     Dates: start: 20100730, end: 20130823
  4. ESOMEPRAZOLE MAGNESIUM [Concomitant]
     Indication: GASTRITIS
     Dosage: 100 MG, UNK
     Route: 048
     Dates: start: 20121203, end: 20130823

REACTIONS (1)
  - Cerebellar infarction [Fatal]
